FAERS Safety Report 15969332 (Version 2)
Quarter: 2019Q2

REPORT INFORMATION
  Report Type: Report from Study
  Country: US (occurrence: US)
  Receive Date: 20190215
  Receipt Date: 20190501
  Transmission Date: 20190711
  Serious: Yes (Hospitalization, Other)
  Sender: FDA-Public Use
  Company Number: US-GILEAD-2019-0390760

PATIENT
  Age: 55 Year
  Sex: Female

DRUGS (20)
  1. VITAMIN B COMPLEX [Concomitant]
     Active Substance: CYANOCOBALAMIN\DEXPANTHENOL\NIACINAMIDE\PYRIDOXINE HYDROCHLORIDE\RIBOFLAVIN 5^-PHOSPHATE SODIUM\THIAMINE HYDROCHLORIDE\VITAMIN B COMPLEX
  2. MS CONTIN [Concomitant]
     Active Substance: MORPHINE SULFATE
  3. LACTULOSE. [Concomitant]
     Active Substance: LACTULOSE
  4. PROPRANOLOL [Concomitant]
     Active Substance: PROPRANOLOL HYDROCHLORIDE
  5. BETAMETHASONE DIPROPIONATE. [Concomitant]
     Active Substance: BETAMETHASONE DIPROPIONATE
  6. OMEGA 3 FISH OIL [FISH OIL] [Concomitant]
  7. FLONASE [Concomitant]
     Active Substance: FLUTICASONE PROPIONATE
  8. OMEPRAZOLE. [Concomitant]
     Active Substance: OMEPRAZOLE
  9. AMBRISENTAN [Suspect]
     Active Substance: AMBRISENTAN
     Indication: PULMONARY ARTERIAL HYPERTENSION
     Dosage: 5 MG, QD
     Route: 048
     Dates: start: 201107
  10. INSULIN NPH [INSULIN ISOPHANE BOVINE] [Concomitant]
  11. FERROUS SULFATE. [Concomitant]
     Active Substance: FERROUS SULFATE
  12. XIFAXAN [Concomitant]
     Active Substance: RIFAXIMIN
  13. TADALAFIL. [Concomitant]
     Active Substance: TADALAFIL
  14. MVI [VITAMINS NOS] [Concomitant]
  15. AMBRISENTAN [Suspect]
     Active Substance: AMBRISENTAN
     Dosage: 10 MG, QD
     Route: 048
  16. NORCO [Concomitant]
     Active Substance: ACETAMINOPHEN\HYDROCODONE BITARTRATE
  17. INSULIN REGULAR [INSULIN BOVINE] [Concomitant]
  18. VENTOLIN HFA [Concomitant]
     Active Substance: ALBUTEROL SULFATE
  19. LASIX [Concomitant]
     Active Substance: FUROSEMIDE
  20. SPIRONOLACTONE. [Concomitant]
     Active Substance: SPIRONOLACTONE

REACTIONS (4)
  - Hepatic encephalopathy [Unknown]
  - Escherichia sepsis [Unknown]
  - Hyperglycaemia [Unknown]
  - Hepatic encephalopathy [Recovered/Resolved]
